FAERS Safety Report 13641303 (Version 1)
Quarter: 2017Q2

REPORT INFORMATION
  Report Type: Spontaneous
  Country: US (occurrence: US)
  Receive Date: 20170609
  Receipt Date: 20170609
  Transmission Date: 20170830
  Serious: Yes (Life-Threatening)
  Sender: FDA-Public Use
  Company Number: None

PATIENT
  Age: 54 Year
  Sex: Female
  Weight: 113.4 kg

DRUGS (14)
  1. TRADJENTA [Concomitant]
     Active Substance: LINAGLIPTIN
  2. MELATONIN [Concomitant]
     Active Substance: MELATONIN
  3. TRAMADOL HCL [Concomitant]
     Active Substance: TRAMADOL HYDROCHLORIDE
  4. ASPRIN [Concomitant]
     Active Substance: ASPIRIN
  5. BUSPIRONE [Concomitant]
     Active Substance: BUSPIRONE HYDROCHLORIDE
  6. PREVASTATIN SODIUM [Concomitant]
     Active Substance: PRAVASTATIN SODIUM
  7. VITAMIN D3 [Concomitant]
     Active Substance: CHOLECALCIFEROL
  8. BACLOFEN. [Concomitant]
     Active Substance: BACLOFEN
  9. JANUVIA [Concomitant]
     Active Substance: SITAGLIPTIN PHOSPHATE
  10. LISINOPRIL. [Concomitant]
     Active Substance: LISINOPRIL
  11. TYLENOL [Concomitant]
     Active Substance: ACETAMINOPHEN
  12. METFORMINE HCL [Concomitant]
     Active Substance: METFORMIN HYDROCHLORIDE
  13. RANITIDINE. [Concomitant]
     Active Substance: RANITIDINE
  14. BELSOMRA [Suspect]
     Active Substance: SUVOREXANT
     Indication: SLEEP DISORDER
     Dosage: ?          QUANTITY:3 TABLET(S);?
     Route: 048
     Dates: start: 20170519, end: 20170608

REACTIONS (3)
  - Suicidal behaviour [None]
  - Crying [None]
  - Drug ineffective [None]

NARRATIVE: CASE EVENT DATE: 20170608
